FAERS Safety Report 17186448 (Version 1)
Quarter: 2019Q4

REPORT INFORMATION
  Report Type: Spontaneous
  Country: AR (occurrence: AR)
  Receive Date: 20191220
  Receipt Date: 20191220
  Transmission Date: 20200122
  Serious: Yes (Other)
  Sender: FDA-Public Use
  Company Number: AR-PFIZER INC-2019547993

PATIENT
  Age: 72 Year
  Sex: Female

DRUGS (1)
  1. XELJANZ [Suspect]
     Active Substance: TOFACITINIB CITRATE
     Indication: RHEUMATOID ARTHRITIS
     Dosage: 5 MG, 2X/DAY
     Dates: start: 20171223

REACTIONS (11)
  - Pain in extremity [Recovered/Resolved]
  - Abdominal pain [Recovered/Resolved]
  - Diabetes mellitus [Recovered/Resolved]
  - Blood magnesium decreased [Recovered/Resolved]
  - Arthralgia [Recovered/Resolved]
  - Bone disorder [Recovered/Resolved]
  - Vitamin D decreased [Recovered/Resolved]
  - Traumatic haemorrhage [Recovered/Resolved]
  - Back pain [Recovered/Resolved]
  - Blister [Recovered/Resolved]
  - Limb injury [Recovered/Resolved]

NARRATIVE: CASE EVENT DATE: 20191202
